FAERS Safety Report 19708683 (Version 9)
Quarter: 2024Q2

REPORT INFORMATION
  Report Type: Report from Study
  Country: CA (occurrence: CA)
  Receive Date: 20210817
  Receipt Date: 20240509
  Transmission Date: 20240716
  Serious: Yes (Other)
  Sender: FDA-Public Use
  Company Number: CA-JNJFOC-20210825007

PATIENT
  Age: 16 Year
  Sex: Male
  Weight: 62 kg

DRUGS (7)
  1. REMICADE [Suspect]
     Active Substance: INFLIXIMAB
     Indication: Crohn^s disease
     Dosage: EXPIRY DATE- 31-AUG-2025, 28-FEB-2026?. LAST TREATMENT ON 07-JUN-2023.
     Route: 041
     Dates: start: 20141219
  2. REMICADE [Suspect]
     Active Substance: INFLIXIMAB
     Dosage: REGIMEN ADDED TO ADD BATCH NUMBER.
     Route: 041
     Dates: start: 20141219
  3. COLLAGEN [Concomitant]
     Active Substance: COLLAGEN
     Indication: Product used for unknown indication
     Route: 048
  4. ERGOCALCIFEROL [Concomitant]
     Active Substance: ERGOCALCIFEROL
     Indication: Product used for unknown indication
     Route: 065
  5. VITAMIN B12 [Concomitant]
     Active Substance: CYANOCOBALAMIN
     Indication: Product used for unknown indication
     Route: 065
  6. GLUCOSAMINE SULFATE [Concomitant]
     Active Substance: GLUCOSAMINE SULFATE
     Indication: Product used for unknown indication
     Route: 065
  7. CEPHALEXIN [Concomitant]
     Active Substance: CEPHALEXIN
     Indication: Prophylaxis
     Route: 065
     Dates: start: 2023

REACTIONS (11)
  - Insomnia [Recovered/Resolved]
  - Eye infection bacterial [Recovered/Resolved]
  - Influenza [Recovered/Resolved]
  - Craniofacial fracture [Recovered/Resolved]
  - Haematochezia [Recovered/Resolved]
  - Nasal septum deviation [Unknown]
  - Clavicle fracture [Not Recovered/Not Resolved]
  - Nasopharyngitis [Recovered/Resolved]
  - Abdominal pain [Unknown]
  - Abdominal discomfort [Recovered/Resolved]
  - Inappropriate schedule of product administration [Unknown]

NARRATIVE: CASE EVENT DATE: 20180120
